FAERS Safety Report 21897241 (Version 1)
Quarter: 2023Q1

REPORT INFORMATION
  Report Type: Spontaneous
  Country: TW (occurrence: TW)
  Receive Date: 20230123
  Receipt Date: 20230123
  Transmission Date: 20230418
  Serious: Yes (Hospitalization, Other)
  Sender: FDA-Public Use
  Company Number: TW-AMGEN-TWNSP2023008869

PATIENT
  Age: 25 Year
  Sex: Male

DRUGS (2)
  1. BLINCYTO [Suspect]
     Active Substance: BLINATUMOMAB
     Indication: B precursor type acute leukaemia
     Dosage: 3 CYCLES
     Route: 065
     Dates: start: 2020
  2. BLINCYTO [Suspect]
     Active Substance: BLINATUMOMAB
     Dosage: 9 MICROGRAM, QD
     Route: 065

REACTIONS (4)
  - Hepatotoxicity [Unknown]
  - Fatigue [Unknown]
  - Cytokine release syndrome [Recovering/Resolving]
  - Pyrexia [Unknown]

NARRATIVE: CASE EVENT DATE: 20200101
